FAERS Safety Report 9385050 (Version 2)
Quarter: 2013Q3

REPORT INFORMATION
  Report Type: Spontaneous
  Country: US (occurrence: US)
  Receive Date: 20130705
  Receipt Date: 20130814
  Transmission Date: 20140515
  Serious: Yes (Other)
  Sender: FDA-Public Use
  Company Number: US-UCBSA-090441

PATIENT
  Age: 74 Year
  Sex: Male

DRUGS (4)
  1. NEUPRO [Suspect]
     Indication: PARKINSON^S DISEASE
     Dosage: DOSE : 4 MG
     Route: 062
     Dates: start: 20130622, end: 20130625
  2. NEUPRO [Suspect]
     Indication: PARKINSON^S DISEASE
     Dosage: DOSE : 6 MG
     Route: 062
     Dates: start: 20130214, end: 201306
  3. NEUPRO [Suspect]
     Indication: PARKINSON^S DISEASE
     Dosage: DOSE : 4 MG
     Route: 062
  4. NEUPRO [Suspect]
     Indication: PARKINSON^S DISEASE
     Dosage: DOSE : 2 MG
     Route: 062
     Dates: start: 20121231

REACTIONS (1)
  - Application site rash [Unknown]
